FAERS Safety Report 5628620-7 (Version None)
Quarter: 2008Q1

REPORT INFORMATION
  Report Type: 
  Country: None (occurrence: None)
  Receive Date: 20080215
  Receipt Date: 20080211
  Transmission Date: 20080703
  Serious: Yes (Hospitalization, Disabling)
  Sender: FDA-Public Use
  Company Number: NO-MERCK-0802NOR00005

PATIENT
  Age: 77 Year
  Sex: Male

DRUGS (10)
  1. ZOCOR [Suspect]
     Indication: HYPERCHOLESTEROLAEMIA
     Route: 048
     Dates: start: 20061111, end: 20070101
  2. RAMIPRIL [Concomitant]
     Route: 048
  3. ISOSORBIDE MONONITRATE [Concomitant]
     Route: 048
  4. TRAMADOL HYDROCHLORIDE [Concomitant]
     Route: 048
  5. WARFARIN SODIUM [Concomitant]
     Route: 048
  6. ZOPICLONE [Concomitant]
     Route: 048
  7. SPIRONOLACTONE [Concomitant]
     Route: 048
  8. BISOPROLOL FUMARATE [Concomitant]
     Route: 048
  9. BUMETANIDE [Concomitant]
     Route: 048
  10. SALMETEROL XINAFOATE [Concomitant]

REACTIONS (2)
  - MYOPATHY TOXIC [None]
  - POLYMYOSITIS [None]
